FAERS Safety Report 8082710-0 (Version None)
Quarter: 2012Q1

REPORT INFORMATION
  Report Type: 
  Country: None (occurrence: None)
  Receive Date: 20120127
  Receipt Date: 20110225
  Transmission Date: 20120608
  Serious: No
  Sender: FDA-Public Use
  Company Number: US-ABBOTT-11P-163-0708380-00

PATIENT
  Sex: Female
  Weight: 64.922 kg

DRUGS (6)
  1. PROPRANOLOL [Concomitant]
  2. CYMBALTA [Concomitant]
     Indication: HEADACHE
  3. PROPRANOLOL [Concomitant]
     Indication: HYPERTENSION
     Dosage: UNKNOWN DOSE INCREASE
  4. MELOXICAM [Concomitant]
     Indication: ARTHRITIS
     Dates: start: 20050101
  5. PROCARDIA [Concomitant]
     Indication: HYPERTENSION
  6. HUMIRA [Suspect]
     Indication: ARTHRITIS
     Route: 058
     Dates: start: 20101101

REACTIONS (2)
  - VITREOUS FLOATERS [None]
  - HEADACHE [None]
